FAERS Safety Report 4840054-1 (Version None)
Quarter: 2005Q4

REPORT INFORMATION
  Report Type: 
  Country: None (occurrence: None)
  Receive Date: 20051125
  Receipt Date: 20051111
  Transmission Date: 20060501
  Serious: Yes (Death)
  Sender: FDA-Public Use
  Company Number: 2005EU002545

PATIENT
  Age: 46 Year
  Sex: Male

DRUGS (10)
  1. PROGRAF [Suspect]
     Indication: RENAL TRANSPLANT
     Dates: start: 19970101
  2. PREDNISONE [Concomitant]
  3. DILTIAZEM [Concomitant]
  4. DOXAZOSIM (DOXAZOSIN) [Concomitant]
  5. ENALAPRIL MALEATE [Concomitant]
  6. CLONIDINE [Concomitant]
  7. FUROSEMIDE [Concomitant]
  8. RANITIDINE [Concomitant]
  9. CALCITRIOL [Concomitant]
  10. ALLOPURINOL [Concomitant]

REACTIONS (4)
  - CEREBRAL HAEMORRHAGE [None]
  - PNEUMONIA [None]
  - THROMBASTHENIA [None]
  - THROMBOCYTOPENIA [None]
